FAERS Safety Report 10599039 (Version 3)
Quarter: 2014Q4

REPORT INFORMATION
  Report Type: Spontaneous
  Country: GR (occurrence: GR)
  Receive Date: 20141121
  Receipt Date: 20141201
  Transmission Date: 20150529
  Serious: Yes (Death, Hospitalization)
  Sender: FDA-Public Use
  Company Number: GR-BAYER-2014-162967

PATIENT
  Age: 53 Year
  Sex: Male

DRUGS (2)
  1. CIPROXIN [Suspect]
     Active Substance: CIPROFLOXACIN
     Indication: GANGRENE
     Dosage: UNK
     Route: 042
     Dates: start: 20141031
  2. CIPROXIN [Suspect]
     Active Substance: CIPROFLOXACIN
     Indication: GANGRENE
     Dosage: UNK
     Route: 048
     Dates: start: 201410, end: 20141031

REACTIONS (4)
  - Hypoglycaemia [Recovered/Resolved]
  - Loss of consciousness [Recovered/Resolved]
  - Blood albumin decreased [None]
  - Cardiac arrest [Fatal]

NARRATIVE: CASE EVENT DATE: 20141031
